FAERS Safety Report 26149002 (Version 1)
Quarter: 2025Q4

REPORT INFORMATION
  Report Type: Spontaneous
  Country: US (occurrence: US)
  Receive Date: 20251212
  Receipt Date: 20251212
  Transmission Date: 20260118
  Serious: No
  Sender: DR REDDYS
  Company Number: None

PATIENT
  Sex: Male

DRUGS (3)
  1. METHYLPHENIDATE [Suspect]
     Active Substance: METHYLPHENIDATE
     Indication: Cancer fatigue
  2. ESCITALOPRAM [Concomitant]
     Active Substance: ESCITALOPRAM OXALATE
     Indication: Major depression
     Dosage: RECOMMENDED INCREASING ESCITALOPRAM
  3. PAZOPANIB [Concomitant]
     Active Substance: PAZOPANIB
     Indication: Desmoid tumour

REACTIONS (1)
  - Decreased appetite [Unknown]
